FAERS Safety Report 21355362 (Version 2)
Quarter: 2022Q4

REPORT INFORMATION
  Report Type: Spontaneous
  Country: US (occurrence: US)
  Receive Date: 20220920
  Receipt Date: 20221108
  Transmission Date: 20230113
  Serious: Yes (Hospitalization)
  Sender: FDA-Public Use
  Company Number: US-INTRA-CELLULAR THERAPIES, INC.-2022ICT01189

PATIENT
  Sex: Female
  Weight: 104.31 kg

DRUGS (1)
  1. CAPLYTA [Suspect]
     Active Substance: LUMATEPERONE
     Indication: Bipolar II disorder
     Dosage: 42 MG, 1X/DAY
     Route: 048
     Dates: start: 202206, end: 2022

REACTIONS (23)
  - Migraine [Recovering/Resolving]
  - Product dose omission issue [Recovered/Resolved]
  - Peripheral coldness [Recovering/Resolving]
  - Hypoaesthesia [Recovered/Resolved]
  - Myalgia [Not Recovered/Not Resolved]
  - Musculoskeletal stiffness [Not Recovered/Not Resolved]
  - Asthenia [Not Recovered/Not Resolved]
  - Visual impairment [Recovering/Resolving]
  - Weight decreased [Recovering/Resolving]
  - Decreased appetite [Recovering/Resolving]
  - Hypertension [Recovering/Resolving]
  - Aspartate aminotransferase increased [Recovering/Resolving]
  - Antinuclear antibody increased [Recovering/Resolving]
  - Aldolase increased [Recovering/Resolving]
  - Anion gap increased [Recovering/Resolving]
  - Blood urea decreased [Recovering/Resolving]
  - Neuropathy peripheral [Recovered/Resolved]
  - Peripheral sensory neuropathy [Recovered/Resolved]
  - Blood glucose increased [Recovering/Resolving]
  - Tremor [Recovered/Resolved]
  - Muscle spasms [Recovering/Resolving]
  - Dry mouth [Recovering/Resolving]
  - Abdominal discomfort [Recovering/Resolving]

NARRATIVE: CASE EVENT DATE: 20220101
